FAERS Safety Report 23776422 (Version 1)
Quarter: 2024Q2

REPORT INFORMATION
  Report Type: Spontaneous
  Country: CN (occurrence: CN)
  Receive Date: 20240424
  Receipt Date: 20240424
  Transmission Date: 20240716
  Serious: Yes (Hospitalization, Other)
  Sender: FDA-Public Use
  Company Number: CN-009507513-2404CHN009679

PATIENT
  Age: 78 Year
  Sex: Male
  Weight: 66 kg

DRUGS (5)
  1. KEYTRUDA [Suspect]
     Active Substance: PEMBROLIZUMAB
     Indication: Lung neoplasm malignant
     Dosage: 200 MG, ONE TIME ONE DAY
     Route: 041
     Dates: start: 20240126, end: 20240126
  2. PEMETREXED DISODIUM [Suspect]
     Active Substance: PEMETREXED DISODIUM
     Indication: Lung neoplasm malignant
     Dosage: 200 MG, ONE TIME ONE DAY
     Route: 041
     Dates: start: 20240126, end: 20240126
  3. SINTILIMAB [Suspect]
     Active Substance: SINTILIMAB
     Indication: Lung neoplasm malignant
     Dosage: 200 MG, ONE TIME ONE DAY
     Route: 041
     Dates: start: 20240126, end: 20240126
  4. CHLORIDE SODIUM [Concomitant]
     Dosage: 100 MILLILITER, ONCE
     Route: 041
     Dates: start: 20240126, end: 20240126
  5. CHLORIDE SODIUM [Concomitant]
     Dosage: 100 MILLILITER, ONCE
     Route: 041
     Dates: start: 20240126, end: 20240126

REACTIONS (3)
  - Platelet count decreased [Recovering/Resolving]
  - Melaena [Unknown]
  - Product use issue [Unknown]

NARRATIVE: CASE EVENT DATE: 20240126
